FAERS Safety Report 10071410 (Version 1)
Quarter: 2014Q2

REPORT INFORMATION
  Report Type: Report from Study
  Country: US (occurrence: US)
  Receive Date: 20140410
  Receipt Date: 20140410
  Transmission Date: 20141212
  Serious: Yes (Hospitalization)
  Sender: FDA-Public Use
  Company Number: US-ABBVIE-14P-163-1219908-00

PATIENT
  Age: 60 Year
  Sex: Male
  Weight: 86.26 kg

DRUGS (2)
  1. HUMIRA [Suspect]
     Indication: RHEUMATOID ARTHRITIS
     Dates: start: 2011, end: 201401
  2. VIAGRA [Concomitant]
     Indication: ERECTILE DYSFUNCTION

REACTIONS (5)
  - Calculus bladder [Recovered/Resolved]
  - Prostate cancer [Recovered/Resolved]
  - Urinary incontinence [Not Recovered/Not Resolved]
  - Colitis ulcerative [Not Recovered/Not Resolved]
  - Erectile dysfunction [Not Recovered/Not Resolved]
